FAERS Safety Report 19266394 (Version 2)
Quarter: 2021Q2

REPORT INFORMATION
  Report Type: Spontaneous
  Country: DE (occurrence: DE)
  Receive Date: 20210518
  Receipt Date: 20210519
  Transmission Date: 20210717
  Serious: No
  Sender: FDA-Public Use
  Company Number: DE-009507513-2104DEU002448

PATIENT
  Age: 47 Year
  Sex: Male
  Weight: 47.5 kg

DRUGS (4)
  1. BIKTARVY [Suspect]
     Active Substance: BICTEGRAVIR SODIUM\EMTRICITABINE\TENOFOVIR ALAFENAMIDE FUMARATE
     Indication: HIV INFECTION
     Dosage: 1 DOSAGE FORM, QD; 50MG/200MG/25MG
     Route: 065
     Dates: start: 201810, end: 202007
  2. ISENTRESS [Suspect]
     Active Substance: RALTEGRAVIR POTASSIUM
     Indication: HIV INFECTION
     Dosage: 400 MILLIGRAM, QD
     Route: 065
     Dates: start: 201806, end: 201809
  3. DESCOVY [Suspect]
     Active Substance: EMTRICITABINE\TENOFOVIR ALAFENAMIDE FUMARATE
     Indication: HIV INFECTION
     Dosage: 1 DOSAGE FORM, QD; 200MG/25MG,
     Route: 065
     Dates: start: 201806, end: 201809
  4. SULFAMETHOXAZOLE;TRIMETHOPRIM [Concomitant]
     Active Substance: SULFAMETHOXAZOLE\TRIMETHOPRIM
     Dosage: UNK

REACTIONS (3)
  - Fat tissue increased [Recovering/Resolving]
  - Weight increased [Recovering/Resolving]
  - Body mass index increased [Recovering/Resolving]

NARRATIVE: CASE EVENT DATE: 201807
